FAERS Safety Report 12461156 (Version 1)
Quarter: 2016Q2

REPORT INFORMATION
  Report Type: Spontaneous
  Country: US (occurrence: US)
  Receive Date: 20160613
  Receipt Date: 20160613
  Transmission Date: 20160815
  Serious: No
  Sender: FDA-Public Use
  Company Number: US-US WORLDMEDS, LLC-USW201601-000207

PATIENT
  Age: 77 Year
  Sex: Male
  Weight: 85.72 kg

DRUGS (11)
  1. ARICEPT [Concomitant]
     Active Substance: DONEPEZIL HYDROCHLORIDE
  2. SIMVASTATIN. [Concomitant]
     Active Substance: SIMVASTATIN
     Route: 048
  3. MAGNESIUM GLYCINATE [Concomitant]
     Active Substance: MAGNESIUM GLYCINATE
  4. METOPROLOL TARTRATE. [Concomitant]
     Active Substance: METOPROLOL TARTRATE
  5. VESICARE [Concomitant]
     Active Substance: SOLIFENACIN SUCCINATE
  6. MIRAPEX [Concomitant]
     Active Substance: PRAMIPEXOLE DIHYDROCHLORIDE
  7. ASPIRIN. [Concomitant]
     Active Substance: ASPIRIN
  8. APOKYN [Suspect]
     Active Substance: APOMORPHINE HYDROCHLORIDE
     Indication: PARKINSON^S DISEASE
     Route: 058
     Dates: start: 20160120
  9. CARBIDOPA-LEVODOAPA [Concomitant]
  10. OMEPRAZOLE. [Concomitant]
     Active Substance: OMEPRAZOLE
  11. CARBIDOPA/LEVODOPA [Concomitant]
     Active Substance: CARBIDOPA\LEVODOPA

REACTIONS (1)
  - Yawning [Recovered/Resolved]

NARRATIVE: CASE EVENT DATE: 20160120
